FAERS Safety Report 13339682 (Version 2)
Quarter: 2018Q1

REPORT INFORMATION
  Report Type: Spontaneous
  Country: GB (occurrence: GB)
  Receive Date: 20170315
  Receipt Date: 20180112
  Transmission Date: 20180508
  Serious: Yes (Hospitalization)
  Sender: FDA-Public Use
  Company Number: GB-ELI_LILLY_AND_COMPANY-GB201703001884

PATIENT
  Age: 45 Year
  Sex: Male

DRUGS (1)
  1. OLANZAPINE PAMOATE 300MG [Suspect]
     Active Substance: OLANZAPINE PAMOATE
     Indication: SCHIZOPHRENIA
     Dosage: 300 MG, UNKNOWN
     Route: 030
     Dates: start: 20170120

REACTIONS (4)
  - Tachycardia [Recovered/Resolved]
  - Dysarthria [Recovered/Resolved]
  - Dizziness [Recovered/Resolved]
  - Salivary hypersecretion [Recovered/Resolved]

NARRATIVE: CASE EVENT DATE: 20170120
